FAERS Safety Report 17852799 (Version 2)
Quarter: 2020Q2

REPORT INFORMATION
  Report Type: Report from Study
  Country: US (occurrence: US)
  Receive Date: 20200603
  Receipt Date: 20200608
  Transmission Date: 20200714
  Serious: Yes (Hospitalization)
  Sender: FDA-Public Use
  Company Number: US-ROCHE-2609402

PATIENT
  Age: 39 Year
  Sex: Female
  Weight: 118.04 kg

DRUGS (14)
  1. NEURONTIN [Concomitant]
     Active Substance: GABAPENTIN
     Route: 048
  2. ACTEMRA [Suspect]
     Active Substance: TOCILIZUMAB
     Indication: COVID-19 PNEUMONIA
     Route: 042
     Dates: start: 20200403, end: 20200403
  3. COLACE [Concomitant]
     Active Substance: DOCUSATE SODIUM
     Indication: CONSTIPATION
     Route: 048
  4. BACLOFEN. [Concomitant]
     Active Substance: BACLOFEN
     Indication: MUSCLE SPASMS
     Route: 048
  5. LYRICA [Concomitant]
     Active Substance: PREGABALIN
     Indication: HYPOAESTHESIA
     Route: 048
  6. SENOKOT [Concomitant]
     Active Substance: SENNOSIDES
     Indication: CONSTIPATION
     Route: 048
  7. CARBAMAZEPINE. [Concomitant]
     Active Substance: CARBAMAZEPINE
     Indication: PAIN
     Route: 048
  8. OCREVUS [Suspect]
     Active Substance: OCRELIZUMAB
     Indication: RELAPSING MULTIPLE SCLEROSIS
     Dosage: RECEIVED DOSE 2 ON 27/DEC/2019
     Route: 042
     Dates: start: 20190624
  9. ACTEMRA [Suspect]
     Active Substance: TOCILIZUMAB
     Route: 042
     Dates: start: 20200410, end: 20200410
  10. ADVAIR HFA [Concomitant]
     Active Substance: FLUTICASONE PROPIONATE\SALMETEROL XINAFOATE
     Indication: ASTHMA
     Route: 048
  11. METFORMIN [Concomitant]
     Active Substance: METFORMIN HYDROCHLORIDE
     Indication: DIABETES MELLITUS
     Route: 048
  12. ATENOLOL. [Concomitant]
     Active Substance: ATENOLOL
     Indication: HYPERTENSION
     Route: 048
  13. CYMBALTA [Concomitant]
     Active Substance: DULOXETINE HYDROCHLORIDE
     Indication: DEPRESSION
     Route: 065
  14. PREDNISONE. [Concomitant]
     Active Substance: PREDNISONE
     Indication: ASTHMA
     Route: 048

REACTIONS (3)
  - COVID-19 pneumonia [Recovered/Resolved]
  - Off label use [Unknown]
  - Intentional product use issue [Unknown]

NARRATIVE: CASE EVENT DATE: 20200328
